FAERS Safety Report 21664196 (Version 1)
Quarter: 2022Q4

REPORT INFORMATION
  Report Type: Spontaneous
  Country: NL (occurrence: NL)
  Receive Date: 20221130
  Receipt Date: 20221130
  Transmission Date: 20230113
  Serious: Yes (Other)
  Sender: FDA-Public Use
  Company Number: None

PATIENT

DRUGS (4)
  1. IBUPROFEN [Suspect]
     Active Substance: IBUPROFEN
     Indication: Headache
     Dosage: 1 DF, ONE-TIME
     Dates: start: 20221108, end: 20221108
  2. CELECOXIB [Suspect]
     Active Substance: CELECOXIB
     Indication: Dactylitis
     Dosage: 200 MG, BID (2 X PER DAY 1 CAPSULE)
     Dates: start: 20180829
  3. TEMAZEPAM [Concomitant]
     Active Substance: TEMAZEPAM
     Indication: Product used for unknown indication
     Dosage: 10 MG, TABLET
  4. DESLORATADINE [Concomitant]
     Active Substance: DESLORATADINE
     Indication: Product used for unknown indication
     Dosage: 5 MG, TABLET

REACTIONS (1)
  - Angioedema [Unknown]
